FAERS Safety Report 5771810-3 (Version None)
Quarter: 2008Q2

REPORT INFORMATION
  Report Type: 
  Country: None (occurrence: None)
  Receive Date: 20080613
  Receipt Date: 20080605
  Transmission Date: 20081010
  Serious: Yes (Hospitalization)
  Sender: FDA-Public Use
  Company Number: A0539135A

PATIENT
  Age: 38 Year
  Sex: Male

DRUGS (3)
  1. PAXIL CR [Suspect]
     Indication: DEPRESSION
     Dosage: 25MGD PER DAY
     Route: 048
     Dates: start: 20030623, end: 20030626
  2. PAXIL [Suspect]
     Indication: DEPRESSION
     Dosage: 40MG PER DAY
     Route: 048
     Dates: start: 20030627, end: 20030723
  3. ALCOHOL [Concomitant]
     Dosage: 4UNIT PER DAY
     Route: 048

REACTIONS (22)
  - ABSCESS [None]
  - AGITATION [None]
  - ANGER [None]
  - ANXIETY [None]
  - CHEST DISCOMFORT [None]
  - DISABILITY [None]
  - DISCOMFORT [None]
  - DISORIENTATION [None]
  - GAIT DISTURBANCE [None]
  - IRRITABILITY [None]
  - LOWER LIMB FRACTURE [None]
  - MENTAL IMPAIRMENT [None]
  - NERVOUSNESS [None]
  - OPEN WOUND [None]
  - PAIN [None]
  - PALPITATIONS [None]
  - PHYSICAL DISABILITY [None]
  - ROAD TRAFFIC ACCIDENT [None]
  - SCAR [None]
  - SUICIDAL IDEATION [None]
  - SUICIDE ATTEMPT [None]
  - THERMAL BURN [None]
